FAERS Safety Report 17144598 (Version 1)
Quarter: 2019Q4

REPORT INFORMATION
  Report Type: Spontaneous
  Country: US (occurrence: US)
  Receive Date: 20191212
  Receipt Date: 20191212
  Transmission Date: 20200122
  Serious: Yes (Hospitalization, Other)
  Sender: FDA-Public Use
  Company Number: US-GLAND PHARMA LIMITED-2077755

PATIENT
  Age: 45 Year
  Sex: Female

DRUGS (5)
  1. GEMCITABINE HYDROCHLORIDE. [Suspect]
     Active Substance: GEMCITABINE HYDROCHLORIDE
     Indication: CUTANEOUS T-CELL LYMPHOMA
  2. MEROPENEM. [Concomitant]
     Active Substance: MEROPENEM
  3. VANCOMYCIN [Concomitant]
     Active Substance: VANCOMYCIN
  4. ACICLOVIR [Concomitant]
     Active Substance: ACYCLOVIR
  5. MICAFUNGIN. [Concomitant]
     Active Substance: MICAFUNGIN SODIUM

REACTIONS (2)
  - Skin necrosis [Recovering/Resolving]
  - Cytopenia [Recovering/Resolving]
